FAERS Safety Report 13260385 (Version 1)
Quarter: 2017Q1

REPORT INFORMATION
  Report Type: Spontaneous
  Country: IT (occurrence: IT)
  Receive Date: 20170222
  Receipt Date: 20170222
  Transmission Date: 20170428
  Serious: Yes (Hospitalization)
  Sender: FDA-Public Use
  Company Number: IT-ASTRAZENECA-2017SE18027

PATIENT
  Age: 78 Year
  Sex: Male

DRUGS (6)
  1. INSULIN [Suspect]
     Active Substance: INSULIN NOS
     Route: 065
  2. RAMIPRIL/HYDROCHLOROTHIAZID [Suspect]
     Active Substance: HYDROCHLOROTHIAZIDE\RAMIPRIL
     Route: 048
  3. ROSUVASTATIN. [Suspect]
     Active Substance: ROSUVASTATIN
     Route: 048
  4. METFORMIN [Suspect]
     Active Substance: METFORMIN HYDROCHLORIDE
     Dosage: NON AZ PRODUCT, 3 GRAMS DAILY.
     Route: 065
  5. ACETYLSALICYLIC ACID [Suspect]
     Active Substance: ASPIRIN
     Route: 048
  6. GLIMEPIRIDE. [Suspect]
     Active Substance: GLIMEPIRIDE
     Route: 065

REACTIONS (2)
  - Lactic acidosis [Unknown]
  - Renal failure [Unknown]
